FAERS Safety Report 7943516-3 (Version None)
Quarter: 2011Q4

REPORT INFORMATION
  Report Type: 
  Country: None (occurrence: None)
  Receive Date: 20111128
  Receipt Date: 20080115
  Transmission Date: 20120403
  Serious: Yes (Death)
  Sender: FDA-Public Use
  Company Number: PHHY2008US37375

PATIENT
  Age: 44 Year
  Sex: Male

DRUGS (10)
  1. SUCCINYLCHOLINE CHLORIDE [Concomitant]
  2. TACRINE [Suspect]
  3. METAXALONE [Suspect]
  4. MEMANTINE [Suspect]
  5. AMANTADINE HCL [Suspect]
  6. BROMOCRIPTINE MESYLATE [Suspect]
     Dosage: UNK UKN, UNK
  7. ROPINIROLE [Suspect]
  8. DONEPEZIL HCL [Suspect]
  9. CLONAZEPAM [Suspect]
  10. LAMOTRIGINE [Suspect]

REACTIONS (1)
  - DEATH [None]
